FAERS Safety Report 8016151 (Version 2)
Quarter: 2013Q1

REPORT INFORMATION
  Report Type: Report from Study
  Country: MY (occurrence: MY)
  Receive Date: 20110630
  Receipt Date: 20130320
  Transmission Date: 20140127
  Serious: Yes (Death, Life-Threatening, Hospitalization)
  Sender: FDA-Public Use
  Company Number: MY-JNJFOC-20110609507

PATIENT
  Age: 58 Year
  Sex: Female
  Weight: 78 kg

DRUGS (16)
  1. GOLIMUMAB [Suspect]
     Indication: RHEUMATOID ARTHRITIS
     Route: 042
     Dates: start: 20100326
  2. GOLIMUMAB [Suspect]
     Indication: RHEUMATOID ARTHRITIS
     Route: 042
     Dates: start: 20110527
  3. FOLATE [Concomitant]
     Route: 048
     Dates: start: 20070530
  4. ROCALTROL [Concomitant]
     Indication: MEDICAL DIET
     Route: 048
     Dates: start: 20070530
  5. NAPROSYN [Concomitant]
     Indication: RHEUMATOID ARTHRITIS
     Route: 048
     Dates: start: 20100128
  6. GABAPENTIN [Concomitant]
     Route: 048
     Dates: start: 20101008
  7. FUCIDIN [Concomitant]
     Route: 061
     Dates: start: 20101130
  8. CEFEPIME [Concomitant]
     Route: 042
     Dates: start: 20110618, end: 20110627
  9. IMIPENEM [Concomitant]
     Route: 048
     Dates: start: 20110627, end: 20110703
  10. PREDNISOLONE [Concomitant]
     Route: 048
     Dates: start: 20110619, end: 20110624
  11. BISOLVON [Concomitant]
     Route: 048
     Dates: start: 20110618, end: 20110705
  12. HEPARIN [Concomitant]
     Route: 042
     Dates: start: 20110701, end: 20110701
  13. COMBIVENT [Concomitant]
     Route: 055
     Dates: start: 20110618, end: 20110705
  14. FUROSEMIDE [Concomitant]
     Route: 042
     Dates: start: 20110617, end: 20110617
  15. FERROUS FUMARATE [Concomitant]
     Route: 048
     Dates: start: 20110619, end: 20110705
  16. TRAMAL [Concomitant]
     Dates: start: 20110702, end: 20110704

REACTIONS (4)
  - Septic shock [Fatal]
  - Abscess [Not Recovered/Not Resolved]
  - Asthma [Not Recovered/Not Resolved]
  - Peripheral vascular disorder [Not Recovered/Not Resolved]
